FAERS Safety Report 21379352 (Version 1)
Quarter: 2022Q3

REPORT INFORMATION
  Report Type: Other
  Country: GB (occurrence: GB)
  Receive Date: 20220927
  Receipt Date: 20220927
  Transmission Date: 20221027
  Serious: Yes (Other)
  Sender: FDA-Public Use
  Company Number: GB-MACLEODS PHARMA EU LTD-MAC2022037345

PATIENT

DRUGS (7)
  1. TAMSULOSIN [Suspect]
     Active Substance: TAMSULOSIN
     Indication: Ill-defined disorder
     Dosage: 1 DOSAGE FORM, QD (TAKE ONE DAILY)
     Route: 065
     Dates: start: 20220831
  2. TAMSULOSIN [Suspect]
     Active Substance: TAMSULOSIN
     Dosage: UNK
     Route: 065
     Dates: start: 20220909
  3. APIXABAN [Concomitant]
     Active Substance: APIXABAN
     Indication: Ill-defined disorder
     Dosage: 1 DOSAGE FORM, BID,(TAKE ONE TWICE DAILY IS ON FOR AF)
     Route: 065
     Dates: start: 20210628
  4. BISOPROLOL [Concomitant]
     Active Substance: BISOPROLOL
     Indication: Ill-defined disorder
     Dosage: 1 DOSAGE FORM, BID,(TAKE ONE TWICE A DAY)
     Route: 065
     Dates: start: 20210628
  5. FLECAINIDE ACETATE [Concomitant]
     Active Substance: FLECAINIDE ACETATE
     Indication: Ill-defined disorder
     Dosage: 1 DOSAGE FORM, QD,(USE AS DIRECTED BY CARDIOLOGY BUT CAN TAKE ONE)
     Route: 065
     Dates: start: 20211213
  6. NITROFURANTOIN [Concomitant]
     Active Substance: NITROFURANTOIN
     Indication: Ill-defined disorder
     Dosage: 1 DOSAGE FORM, BID (TAKE ONE CAPSULE TWICE FOR 7 DAYS)
     Route: 065
     Dates: start: 20220805, end: 20220812
  7. TRIMETHOPRIM [Concomitant]
     Active Substance: TRIMETHOPRIM
     Indication: Ill-defined disorder
     Dosage: 1 DOSAGE FORM, QD (TAKE ONE TWICE DAILY FOR 7 DAYS)
     Route: 065
     Dates: start: 20220826, end: 20220902

REACTIONS (1)
  - Adverse drug reaction [Recovered/Resolved]

NARRATIVE: CASE EVENT DATE: 20220909
